FAERS Safety Report 6024923-5 (Version None)
Quarter: 2008Q4

REPORT INFORMATION
  Report Type: 
  Country: None (occurrence: None)
  Receive Date: 20081231
  Receipt Date: 20081217
  Transmission Date: 20090506
  Serious: Yes (Other)
  Sender: FDA-Public Use
  Company Number: JP-ASTRAZENECA-2008SE05861

PATIENT
  Age: 52 Year
  Sex: Male
  Weight: 79 kg

DRUGS (1)
  1. AMIAS 4MG TABLETS [Suspect]
     Indication: HYPERTENSION
     Route: 048
     Dates: start: 20070501, end: 20081112

REACTIONS (1)
  - RAYNAUD'S PHENOMENON [None]
